FAERS Safety Report 5840781-3 (Version None)
Quarter: 2008Q3

REPORT INFORMATION
  Report Type: 
  Country: None (occurrence: None)
  Receive Date: 20080730
  Receipt Date: 20080514
  Transmission Date: 20090109
  Serious: Yes (Hospitalization)
  Sender: FDA-Public Use
  Company Number: PHEH2008US04626

PATIENT
  Sex: Female
  Weight: 72.6 kg

DRUGS (3)
  1. TEKTURNA [Suspect]
     Indication: HYPERTENSION
     Dosage: 150 MG, QD
     Dates: start: 20080507, end: 20080513
  2. DIOVAN [Concomitant]
  3. NORVASC [Concomitant]

REACTIONS (2)
  - HYPERTENSION [None]
  - RASH [None]
